FAERS Safety Report 7623749-6 (Version None)
Quarter: 2011Q3

REPORT INFORMATION
  Report Type: 
  Country: None (occurrence: None)
  Receive Date: 20110720
  Receipt Date: 20110712
  Transmission Date: 20111222
  Serious: Yes (Hospitalization)
  Sender: FDA-Public Use
  Company Number: FR-GLAXOSMITHKLINE-B0714671A

PATIENT
  Sex: Female
  Weight: 18 kg

DRUGS (3)
  1. TOPOTECAN [Suspect]
     Indication: NEUROBLASTOMA
     Dosage: 2.65MG CUMULATIVE DOSE
     Route: 065
     Dates: start: 20110222
  2. IODINE 131 [Suspect]
     Indication: NEUROBLASTOMA
     Dosage: 1712MBQ PER DAY
     Route: 065
     Dates: start: 20110223
  3. PLATELETS [Concomitant]
     Indication: THROMBOCYTOPENIA
     Dates: start: 20110211, end: 20110708

REACTIONS (1)
  - FEBRILE BONE MARROW APLASIA [None]
